FAERS Safety Report 6206929-6 (Version None)
Quarter: 2009Q2

REPORT INFORMATION
  Report Type: 
  Country: None (occurrence: None)
  Receive Date: 20090528
  Receipt Date: 20090515
  Transmission Date: 20091009
  Serious: Yes (Hospitalization)
  Sender: FDA-Public Use
  Company Number: A0786143A

PATIENT
  Age: 72 Year
  Sex: Male
  Weight: 100 kg

DRUGS (2)
  1. ROSIGLITAZONE [Suspect]
     Dosage: 4MG TWICE PER DAY
     Route: 065
     Dates: start: 20061201, end: 20070301
  2. DIABETA [Concomitant]
     Dosage: 5MG TWICE PER DAY
     Dates: start: 19970101

REACTIONS (1)
  - MYOCARDIAL INFARCTION [None]
